FAERS Safety Report 4518478-1 (Version None)
Quarter: 2004Q4

REPORT INFORMATION
  Report Type: 
  Country: None (occurrence: None)
  Receive Date: 20041203
  Receipt Date: 20041025
  Transmission Date: 20050328
  Serious: Yes (Hospitalization)
  Sender: FDA-Public Use
  Company Number: JP-MERCK-0410USA04151

PATIENT
  Age: 72 Year
  Sex: Female

DRUGS (2)
  1. SINGULAIR [Suspect]
     Indication: ASTHMA
     Route: 048
     Dates: start: 20010101
  2. PULMICORT [Concomitant]
     Route: 055

REACTIONS (2)
  - AUTOIMMUNE HEPATITIS [None]
  - HEPATIC FUNCTION ABNORMAL [None]
